FAERS Safety Report 16912955 (Version 1)
Quarter: 2019Q4

REPORT INFORMATION
  Report Type: Spontaneous
  Country: US (occurrence: US)
  Receive Date: 20191014
  Receipt Date: 20191014
  Transmission Date: 20200122
  Serious: No
  Sender: FDA-Public Use
  Company Number: US-ASTRAZENECA-2019SF34792

PATIENT
  Sex: Female

DRUGS (1)
  1. CRESTOR [Suspect]
     Active Substance: ROSUVASTATIN CALCIUM
     Dosage: UNKNOWN
     Route: 048

REACTIONS (5)
  - Drug hypersensitivity [Unknown]
  - Product use issue [Unknown]
  - Alanine aminotransferase increased [Unknown]
  - Pain [Unknown]
  - Aspartate aminotransferase increased [Unknown]
